FAERS Safety Report 21333634 (Version 2)
Quarter: 2023Q1

REPORT INFORMATION
  Report Type: Spontaneous
  Country: US (occurrence: US)
  Receive Date: 20220914
  Receipt Date: 20230301
  Transmission Date: 20230418
  Serious: No
  Sender: FDA-Public Use
  Company Number: US-ABBVIE-22K-163-4534011-00

PATIENT
  Sex: Female
  Weight: 45 kg

DRUGS (13)
  1. HUMIRA [Suspect]
     Active Substance: ADALIMUMAB
     Indication: Crohn^s disease
     Route: 058
     Dates: start: 20230109
  2. HUMIRA [Suspect]
     Active Substance: ADALIMUMAB
     Route: 058
     Dates: start: 201601, end: 202208
  3. Q EVAIL [Concomitant]
     Indication: Product used for unknown indication
     Dosage: 200 - DESIGNS  FOR HEALTH
  4. Pure encapsulations magnesium (glycinate) [Concomitant]
     Indication: Product used for unknown indication
  5. Mitocore [Concomitant]
     Indication: Product used for unknown indication
  6. ARMOUR THYROID [Concomitant]
     Active Substance: THYROID, PORCINE
     Indication: Autoimmune thyroiditis
     Dosage: COMPOUNDED VERSION
     Dates: start: 2019
  7. OSAPLEX MK 7 [Concomitant]
     Indication: Product used for unknown indication
     Dosage: XYMOGEN
  8. PROBIOTICS NOS [Concomitant]
     Active Substance: PROBIOTICS NOS
     Indication: Product used for unknown indication
  9. QUERCETIN [Concomitant]
     Active Substance: QUERCETIN
     Indication: Product used for unknown indication
     Dosage: NETTLES - DESIGNS FOR HEALTH
  10. Oncoplex [Concomitant]
     Indication: Product used for unknown indication
  11. 5-htp [Concomitant]
     Indication: Product used for unknown indication
     Dosage: (5-100MG HYDROXYTRYPTOPHAN) 100 MG PURE ENCAPSULATIONS
  12. PURE ENCAPSULATIONS B-COMPLEX PLUS [Concomitant]
     Indication: Product used for unknown indication
  13. Pure encapsulations zinc [Concomitant]
     Indication: Product used for unknown indication
     Dosage: CITRATE

REACTIONS (1)
  - Full blood count increased [Unknown]
